FAERS Safety Report 7639669-7 (Version None)
Quarter: 2011Q3

REPORT INFORMATION
  Report Type: 
  Country: None (occurrence: None)
  Receive Date: 20110727
  Receipt Date: 20110719
  Transmission Date: 20111222
  Serious: Yes (Other)
  Sender: FDA-Public Use
  Company Number: US-EISAI INC-E2090-01697-SPO-US

PATIENT
  Age: 9 Year
  Sex: Male

DRUGS (1)
  1. ZONISAMIDE [Suspect]
     Dosage: UNKNOWN
     Route: 048

REACTIONS (2)
  - GASTRIC MUCOSAL LESION [None]
  - VOMITING [None]
